FAERS Safety Report 5370826-9 (Version None)
Quarter: 2007Q2

REPORT INFORMATION
  Report Type: 
  Country: None (occurrence: None)
  Receive Date: 20070614
  Receipt Date: 20070427
  Transmission Date: 20071010
  Serious: No
  Sender: FDA-Public Use
  Company Number: BDI-009430

PATIENT
  Age: 62 Year
  Sex: Male

DRUGS (1)
  1. MULTIHANCE [Suspect]
     Dosage: 20 ML ONCE SY
     Dates: start: 20070312, end: 20070312

REACTIONS (3)
  - DYSPNOEA [None]
  - SINUS CONGESTION [None]
  - URTICARIA [None]
